FAERS Safety Report 7553175-X (Version None)
Quarter: 2011Q2

REPORT INFORMATION
  Report Type: 
  Country: None (occurrence: None)
  Receive Date: 20110617
  Receipt Date: 20110609
  Transmission Date: 20111010
  Serious: Yes (Hospitalization)
  Sender: FDA-Public Use
  Company Number: US-BIOGENIDEC-2011BI002900

PATIENT
  Age: 41 Year
  Sex: Female

DRUGS (1)
  1. TYSABRI [Suspect]
     Indication: MULTIPLE SCLEROSIS
     Route: 042
     Dates: start: 20091228, end: 20101201

REACTIONS (8)
  - STRIDOR [None]
  - UROSEPSIS [None]
  - RESPIRATORY TRACT INFECTION [None]
  - OXYGEN SATURATION DECREASED [None]
  - URINARY TRACT INFECTION [None]
  - ANAEMIA [None]
  - DECUBITUS ULCER [None]
  - PNEUMONIA [None]
